APPROVED DRUG PRODUCT: SODIUM SULAMYD
Active Ingredient: SULFACETAMIDE SODIUM
Strength: 30% **Federal Register determination that product was not discontinued or withdrawn for safety or effectiveness reasons**
Dosage Form/Route: SOLUTION/DROPS;OPHTHALMIC
Application: N005963 | Product #003
Applicant: SCHERING CORP SUB SCHERING PLOUGH CORP
Approved: Approved Prior to Jan 1, 1982 | RLD: Yes | RS: No | Type: DISCN